FAERS Safety Report 7853076-3 (Version None)
Quarter: 2011Q4

REPORT INFORMATION
  Report Type: 
  Country: None (occurrence: None)
  Receive Date: 20111026
  Receipt Date: 20111020
  Transmission Date: 20120403
  Serious: Yes (Hospitalization, Other)
  Sender: FDA-Public Use
  Company Number: FR-AMGEN-FRASP2011043974

PATIENT
  Age: 72 Year
  Sex: Female
  Weight: 63 kg

DRUGS (7)
  1. CORDARONE [Concomitant]
  2. ARANESP [Suspect]
     Indication: MYELODYSPLASTIC SYNDROME
     Dosage: UNK UNK, QWK
     Route: 058
     Dates: start: 20110801
  3. PREVISCAN                          /00261401/ [Concomitant]
     Route: 048
  4. LASIX [Concomitant]
  5. VITAMIN K ANTAGONISTS [Concomitant]
     Indication: MYELODYSPLASTIC SYNDROME
  6. CANDESARTAN CILEXETIL [Concomitant]
  7. METFORMIN HCL [Concomitant]

REACTIONS (4)
  - EHLERS-DANLOS SYNDROME [None]
  - MUSCLE HAEMORRHAGE [None]
  - HAEMORRHAGE [None]
  - HAEMATOMA [None]
